FAERS Safety Report 18675915 (Version 1)
Quarter: 2020Q4

REPORT INFORMATION
  Report Type: Spontaneous
  Country: US (occurrence: US)
  Receive Date: 20201228
  Receipt Date: 20201228
  Transmission Date: 20210114
  Serious: No
  Sender: FDA-Public Use
  Company Number: None

PATIENT
  Age: 40 Year
  Sex: Male

DRUGS (1)
  1. HUMIRA [Suspect]
     Active Substance: ADALIMUMAB
     Route: 042
     Dates: start: 20190715

REACTIONS (3)
  - Device leakage [None]
  - Injection site pain [None]
  - Device malfunction [None]

NARRATIVE: CASE EVENT DATE: 20201228
